FAERS Safety Report 16174594 (Version 1)
Quarter: 2019Q2

REPORT INFORMATION
  Report Type: Spontaneous
  Country: US (occurrence: US)
  Receive Date: 20190306
  Receipt Date: 20190306
  Transmission Date: 20190711
  Serious: No
  Sender: FDA-Public Use
  Company Number: None

PATIENT
  Age: 72 Year
  Sex: Female

DRUGS (4)
  1. COSENTYX [Suspect]
     Active Substance: SECUKINUMAB
     Indication: PSORIATIC ARTHROPATHY
     Dosage: ?          OTHER FREQUENCY:OTHER;?
     Route: 058
     Dates: start: 20190211
  2. NAPROXEN. [Suspect]
     Active Substance: NAPROXEN
  3. SALAGEN [Concomitant]
     Active Substance: PILOCARPINE HYDROCHLORIDE
  4. PILOCARPINE. [Concomitant]
     Active Substance: PILOCARPINE

REACTIONS (2)
  - Blister [None]
  - Blood blister [None]

NARRATIVE: CASE EVENT DATE: 20190306
